FAERS Safety Report 20797365 (Version 2)
Quarter: 2022Q2

REPORT INFORMATION
  Report Type: Report from Study
  Country: US (occurrence: US)
  Receive Date: 20220506
  Receipt Date: 20220510
  Transmission Date: 20220721
  Serious: No
  Sender: FDA-Public Use
  Company Number: US-NOVARTISTESTPH-NVSC2022US103903

PATIENT
  Age: 50 Year
  Sex: Female

DRUGS (1)
  1. KESIMPTA [Suspect]
     Active Substance: OFATUMUMAB
     Indication: Relapsing multiple sclerosis
     Dosage: 20 MG, QMO
     Route: 058
     Dates: start: 20220427

REACTIONS (9)
  - Premenstrual syndrome [Unknown]
  - Breast tenderness [Unknown]
  - Breast swelling [Unknown]
  - Discomfort [Unknown]
  - Malaise [Unknown]
  - Pruritus [Recovering/Resolving]
  - Headache [Unknown]
  - Pyrexia [Unknown]
  - Arthralgia [Recovering/Resolving]

NARRATIVE: CASE EVENT DATE: 20220427
